FAERS Safety Report 5353922-1 (Version None)
Quarter: 2007Q2

REPORT INFORMATION
  Report Type: 
  Country: None (occurrence: None)
  Receive Date: 20070612
  Receipt Date: 20070606
  Transmission Date: 20071010
  Serious: Yes (Congenital Anomaly)
  Sender: FDA-Public Use
  Company Number: IT-AVENTIS-200713848GDDC

PATIENT
  Sex: Male
  Weight: 3.85 kg

DRUGS (1)
  1. LANTUS [Suspect]
     Route: 064

REACTIONS (2)
  - CONGENITAL AORTIC STENOSIS [None]
  - DRUG EXPOSURE DURING PREGNANCY [None]
